FAERS Safety Report 9787253 (Version 1)
Quarter: 2013Q4

REPORT INFORMATION
  Report Type: Report from Study
  Country: BE (occurrence: BE)
  Receive Date: 20131230
  Receipt Date: 20131230
  Transmission Date: 20140711
  Serious: Yes (Other)
  Sender: FDA-Public Use
  Company Number: BE-ROCHE-1324696

PATIENT
  Sex: Male

DRUGS (10)
  1. MYCOPHENOLATE MOFETIL [Suspect]
     Indication: PRODUCT USED FOR UNKNOWN INDICATION
     Route: 065
     Dates: start: 20120508
  2. MYCOPHENOLATE MOFETIL [Suspect]
     Route: 065
     Dates: start: 20130405
  3. MYCOPHENOLATE MOFETIL [Suspect]
     Route: 065
     Dates: start: 20131028
  4. MYCOPHENOLATE MOFETIL [Suspect]
     Route: 065
     Dates: start: 20131123
  5. MYCOPHENOLATE MOFETIL [Suspect]
     Route: 065
     Dates: start: 20131217
  6. TACROLIMUS [Suspect]
     Indication: PRODUCT USED FOR UNKNOWN INDICATION
     Route: 065
     Dates: start: 20120508
  7. TACROLIMUS [Suspect]
     Route: 065
     Dates: start: 20130405
  8. TACROLIMUS [Suspect]
     Route: 065
     Dates: start: 20131028
  9. TACROLIMUS [Suspect]
     Route: 065
     Dates: start: 20131123
  10. TACROLIMUS [Suspect]
     Route: 065
     Dates: start: 20131217

REACTIONS (1)
  - Nephrotic syndrome [Unknown]
